FAERS Safety Report 25941419 (Version 4)
Quarter: 2025Q4

REPORT INFORMATION
  Report Type: Spontaneous
  Country: US (occurrence: US)
  Receive Date: 20251020
  Receipt Date: 20251112
  Transmission Date: 20260117
  Serious: Yes (Life-Threatening, Hospitalization, Disabling, Other)
  Sender: BRISTOL-MYERS SQUIBB COMPANY
  Company Number: US-BRISTOL-MYERS SQUIBB COMPANY-2025-142041

PATIENT
  Age: 51 Year
  Sex: Female

DRUGS (1)
  1. AUGTYRO [Suspect]
     Active Substance: REPOTRECTINIB
     Indication: ROS1 gene rearrangement
     Dosage: DAILY
     Route: 048
     Dates: start: 20251011

REACTIONS (6)
  - Hepatotoxicity [Recovered/Resolved]
  - Pleural effusion [Unknown]
  - Mitral valve disease [Recovered/Resolved]
  - Acute kidney injury [Recovering/Resolving]
  - Ischaemic hepatitis [Recovered/Resolved]
  - Mental status changes [Unknown]

NARRATIVE: CASE EVENT DATE: 20251012
